FAERS Safety Report 6719690-3 (Version None)
Quarter: 2010Q2

REPORT INFORMATION
  Report Type: 
  Country: None (occurrence: None)
  Receive Date: 20100511
  Receipt Date: 20100426
  Transmission Date: 20101027
  Serious: Yes (Death, Hospitalization)
  Sender: FDA-Public Use
  Company Number: NL-MEDIMMUNE-MEDI-0011149

PATIENT
  Sex: Male

DRUGS (1)
  1. SYNAGIS [Suspect]
     Route: 030
     Dates: start: 20091114, end: 20091210

REACTIONS (5)
  - GASTRIC HAEMORRHAGE [None]
  - IMMUNODEFICIENCY [None]
  - INFECTION [None]
  - LUNG INFECTION [None]
  - PYREXIA [None]
